FAERS Safety Report 11866599 (Version 2)
Quarter: 2016Q1

REPORT INFORMATION
  Report Type: Spontaneous
  Country: PE (occurrence: PE)
  Receive Date: 20151224
  Receipt Date: 20160225
  Transmission Date: 20160526
  Serious: Yes (Other)
  Sender: FDA-Public Use
  Company Number: PE-PFIZER INC-2015452115

PATIENT
  Age: 73 Year
  Sex: Female

DRUGS (1)
  1. XALATAN [Suspect]
     Active Substance: LATANOPROST
     Indication: GLAUCOMA
     Dosage: 1 GTT ON EACH EYE 1X/DAY
     Route: 047

REACTIONS (4)
  - Glaucoma [Recovered/Resolved]
  - Condition aggravated [Recovered/Resolved]
  - Visual acuity reduced [Recovered/Resolved]
  - Cataract [Unknown]
